FAERS Safety Report 19180021 (Version 1)
Quarter: 2021Q2

REPORT INFORMATION
  Report Type: Spontaneous
  Country: US (occurrence: US)
  Receive Date: 20210426
  Receipt Date: 20210426
  Transmission Date: 20210717
  Serious: Yes (Hospitalization)
  Sender: FDA-Public Use
  Company Number: None

PATIENT
  Age: 61 Year
  Sex: Female
  Weight: 77.4 kg

DRUGS (1)
  1. BAMLANIVIMAB. [Suspect]
     Active Substance: BAMLANIVIMAB
     Indication: COVID-19
     Dosage: ?          OTHER FREQUENCY:ONCE;?
     Route: 042
     Dates: start: 20210412, end: 20210412

REACTIONS (7)
  - Dyspnoea [None]
  - Blood lactate dehydrogenase increased [None]
  - Cough [None]
  - White blood cell count decreased [None]
  - Lung infiltration [None]
  - Myalgia [None]
  - Hypoxia [None]

NARRATIVE: CASE EVENT DATE: 20210415
